FAERS Safety Report 10617635 (Version 2)
Quarter: 2014Q4

REPORT INFORMATION
  Report Type: Report from Study
  Country: SE (occurrence: SE)
  Receive Date: 20141201
  Receipt Date: 20141201
  Transmission Date: 20150529
  Serious: Yes (Other)
  Sender: FDA-Public Use
  Company Number: SE-CELGENE-150-C4047-14021844

PATIENT
  Age: 80 Year
  Sex: Male
  Weight: 78.2 kg

DRUGS (11)
  1. CC-4047 [Suspect]
     Active Substance: POMALIDOMIDE
     Indication: SYSTEMIC SCLEROSIS PULMONARY
  2. CC-4047 [Suspect]
     Active Substance: POMALIDOMIDE
     Indication: NEOPLASM
     Route: 048
     Dates: start: 20130415, end: 20130505
  3. CC-4047 [Suspect]
     Active Substance: POMALIDOMIDE
     Indication: SCLERODERMA
  4. CC-4047 [Suspect]
     Active Substance: POMALIDOMIDE
     Indication: PLASMA CELL MYELOMA
     Route: 048
     Dates: start: 20131104
  5. CC-4047 [Suspect]
     Active Substance: POMALIDOMIDE
     Indication: RENAL CELL CARCINOMA
  6. DEXAMETHASONE. [Suspect]
     Active Substance: DEXAMETHASONE
     Indication: PLASMA CELL MYELOMA
     Route: 048
     Dates: start: 20130415, end: 20130506
  7. REVLIMID [Suspect]
     Active Substance: LENALIDOMIDE
     Route: 065
     Dates: start: 20120613, end: 20130201
  8. CC-4047 [Suspect]
     Active Substance: POMALIDOMIDE
     Indication: PROSTATE CANCER
  9. REVLIMID [Suspect]
     Active Substance: LENALIDOMIDE
     Indication: PLASMA CELL MYELOMA
     Route: 065
     Dates: start: 20100129, end: 20100520
  10. THALIDOMIDE [Suspect]
     Active Substance: THALIDOMIDE
     Indication: PLASMA CELL MYELOMA
     Route: 065
     Dates: start: 20090320, end: 20090427
  11. DEXAMETHASONE. [Suspect]
     Active Substance: DEXAMETHASONE
     Route: 048
     Dates: start: 20131104

REACTIONS (1)
  - Squamous cell carcinoma of skin [Recovered/Resolved]

NARRATIVE: CASE EVENT DATE: 20131104
